FAERS Safety Report 5309650-1 (Version None)
Quarter: 2007Q2

REPORT INFORMATION
  Report Type: 
  Country: None (occurrence: None)
  Receive Date: 20070427
  Receipt Date: 20060725
  Transmission Date: 20071010
  Serious: No
  Sender: FDA-Public Use
  Company Number: US-GLAXOSMITHKLINE-A0613501A

PATIENT
  Age: 54 Year
  Sex: Male

DRUGS (12)
  1. DEXEDRINE [Suspect]
     Indication: DRUG USE FOR UNKNOWN INDICATION
     Route: 048
  2. DESYREL [Concomitant]
  3. SOMA [Concomitant]
  4. PRILOSEC [Concomitant]
  5. OXYCONTIN [Concomitant]
  6. VALIUM [Concomitant]
  7. LIDOCAINE [Concomitant]
  8. MARCAINE [Concomitant]
  9. TEGRETOL [Concomitant]
  10. DURAGESIC-100 [Concomitant]
  11. FOSAMAX [Concomitant]
  12. MOTRIN [Concomitant]

REACTIONS (1)
  - DRUG INEFFECTIVE [None]
